FAERS Safety Report 18655903 (Version 1)
Quarter: 2020Q4

REPORT INFORMATION
  Report Type: Spontaneous
  Country: PT (occurrence: PT)
  Receive Date: 20201223
  Receipt Date: 20201223
  Transmission Date: 20210114
  Serious: Yes (Other)
  Sender: FDA-Public Use
  Company Number: PT-PFIZER INC-2020498388

PATIENT
  Age: 35 Year
  Sex: Female

DRUGS (3)
  1. CYTARABINE. [Suspect]
     Active Substance: CYTARABINE
     Dosage: UNK, CYCLIC (CONSOLIDATION CHEMOTHERAPY: 4 CYCLES)
  2. CYTARABINE. [Suspect]
     Active Substance: CYTARABINE
     Indication: CHLOROMA
     Dosage: UNK, CYCLIC (INDUCTION CHEMOTHERAPY)
  3. IDARUBICIN HCL [Suspect]
     Active Substance: IDARUBICIN HYDROCHLORIDE
     Indication: CHLOROMA
     Dosage: UNK, CYCLIC (INDUCTION CHEMOTHERAPY)

REACTIONS (4)
  - Pyelonephritis [Recovered/Resolved]
  - Bronchopulmonary aspergillosis [Recovered/Resolved]
  - Febrile neutropenia [Recovered/Resolved]
  - Enterocolitis [Recovered/Resolved]
